FAERS Safety Report 5537601-3 (Version None)
Quarter: 2007Q4

REPORT INFORMATION
  Report Type: 
  Country: None (occurrence: None)
  Receive Date: 20071207
  Receipt Date: 20071128
  Transmission Date: 20080405
  Serious: Yes (Other)
  Sender: FDA-Public Use
  Company Number: BR-AVENTIS-200720117GDDC

PATIENT
  Age: 65 Year
  Sex: Male
  Weight: 65 kg

DRUGS (4)
  1. LANTUS [Suspect]
     Dosage: DOSE: 25 TO 30
     Route: 058
     Dates: start: 20020101
  2. OPTIPEN (INSULIN PUMP) [Suspect]
     Dates: start: 20020101
  3. OPTIPEN (INSULIN PUMP) [Suspect]
     Dates: start: 20070927, end: 20071027
  4. OPTIPEN (INSULIN PUMP) [Suspect]
     Dates: start: 20071031

REACTIONS (4)
  - BLOOD PRESSURE INCREASED [None]
  - HYPOGLYCAEMIA [None]
  - PHARMACEUTICAL PRODUCT COMPLAINT [None]
  - SOMNOLENCE [None]
